FAERS Safety Report 5551945-0 (Version None)
Quarter: 2007Q4

REPORT INFORMATION
  Report Type: 
  Country: None (occurrence: None)
  Receive Date: 20071212
  Receipt Date: 20071130
  Transmission Date: 20080405
  Serious: Yes (Death, Other)
  Sender: FDA-Public Use
  Company Number: US-PFIZER INC-2007101534

PATIENT
  Sex: Male

DRUGS (12)
  1. LYRICA [Suspect]
  2. DEPO-TESTOSTERONE [Concomitant]
  3. RESTORIL [Concomitant]
  4. OXYCONTIN [Concomitant]
  5. FISH OIL [Concomitant]
  6. ASPIRIN [Concomitant]
  7. ALL OTHER THERAPEUTIC PRODUCTS [Concomitant]
  8. MARINOL [Concomitant]
  9. ZYPREXA [Concomitant]
  10. REMERON [Concomitant]
  11. AUGMENTIN '250' [Concomitant]
  12. PREDNISONE [Concomitant]

REACTIONS (1)
  - CORONARY ARTERY DISEASE [None]
